FAERS Safety Report 19497500 (Version 1)
Quarter: 2021Q3

REPORT INFORMATION
  Report Type: Spontaneous
  Country: DE (occurrence: DE)
  Receive Date: 20210706
  Receipt Date: 20210706
  Transmission Date: 20211014
  Serious: Yes (Other)
  Sender: FDA-Public Use
  Company Number: DE-TEVA-2021-DE-1929475

PATIENT
  Age: 88 Year
  Sex: Male

DRUGS (10)
  1. CARVEDILOL. [Suspect]
     Active Substance: CARVEDILOL
     Indication: PRODUCT USED FOR UNKNOWN INDICATION
     Dosage: 1 DOSAGE FORMS DAILY; THERAPY START DATE ASKU, THERAPY END DATE ASKU, QD
     Route: 065
  2. FUROSEMIDE. [Suspect]
     Active Substance: FUROSEMIDE
     Indication: PRODUCT USED FOR UNKNOWN INDICATION
     Dosage: 1 DF, TID,THERAPY START DATE ASKU, THERAPY END DATE ASKU
     Route: 065
  3. PANTOPRAZOLE [Suspect]
     Active Substance: PANTOPRAZOLE
     Indication: PRODUCT USED FOR UNKNOWN INDICATION
     Dosage: THERAPY START DATE ASKU, THERAPY END DATE ASKU
     Route: 065
  4. RANEXA [Suspect]
     Active Substance: RANOLAZINE
     Indication: PRODUCT USED FOR UNKNOWN INDICATION
     Dosage: 2 DOSAGE FORMS DAILY; QD (SUSTAINED?RELEASE),THERAPY START DATE ASKU, THERAPY END DATE ASKU
     Route: 065
  5. XIPAMIDE [Suspect]
     Active Substance: XIPAMIDE
     Indication: PRODUCT USED FOR UNKNOWN INDICATION
     Dosage: 2 DOSAGE FORMS DAILY; THERAPY START DATE ASKU, THERAPY END DATE ASKU
     Route: 065
  6. MOLSIDOMINE [Suspect]
     Active Substance: MOLSIDOMINE
     Indication: PRODUCT USED FOR UNKNOWN INDICATION
     Dosage: 1 DOSAGE FORMS DAILY; THERAPY START DATE ASKU, THERAPY END DATE ASKU, QD (SUSTAINED RELEASE)
     Route: 065
  7. SIMVASTATIN. [Suspect]
     Active Substance: SIMVASTATIN
     Indication: PRODUCT USED FOR UNKNOWN INDICATION
     Dosage: 1 DOSAGE FORMS DAILY; THERAPY START DATE ASKU, THERAPY END DATE ASKU
     Route: 065
  8. ACETYLSALICYLIC ACID [Suspect]
     Active Substance: ASPIRIN
     Indication: PRODUCT USED FOR UNKNOWN INDICATION
     Dosage: 1 DOSAGE FORMS DAILY; UNK, QD,THERAPY START DATE ASKU, THERAPY END DATE ASKU
     Route: 065
  9. CORTISONE [Suspect]
     Active Substance: CORTISONE
     Indication: PLATELET COUNT DECREASED
     Dosage: UNK,THERAPY START DATE ASKU, THERAPY END DATE ASKU
     Route: 065
  10. ENTRESTO [Suspect]
     Active Substance: SACUBITRIL\VALSARTAN
     Indication: PRODUCT USED FOR UNKNOWN INDICATION
     Dosage: 2 DOSAGE FORMS DAILY;
     Route: 065
     Dates: start: 202009

REACTIONS (2)
  - Pancreatitis [Unknown]
  - Platelet count decreased [Not Recovered/Not Resolved]
